FAERS Safety Report 8238404-1 (Version None)
Quarter: 2012Q1

REPORT INFORMATION
  Report Type: 
  Country: None (occurrence: None)
  Receive Date: 20120327
  Receipt Date: 20120315
  Transmission Date: 20120608
  Serious: Yes (Death, Hospitalization)
  Sender: FDA-Public Use
  Company Number: GB-ROCHE-1046122

PATIENT
  Sex: Male
  Weight: 77 kg

DRUGS (8)
  1. DIHYDROCHLOROTHIAZIDE [Concomitant]
     Indication: PAIN
  2. MABTHERA [Suspect]
     Indication: NON-HODGKIN'S LYMPHOMA
     Route: 042
     Dates: start: 20111230
  3. NAPROXEN [Concomitant]
     Indication: RHEUMATOID ARTHRITIS
  4. MABTHERA [Suspect]
     Indication: RHEUMATOID ARTHRITIS
  5. AMITRIPTYLINE HCL [Concomitant]
     Indication: PAIN
     Dosage: ONCE DAILY
  6. OMEPRAZOLE [Concomitant]
     Indication: PRODUCT USED FOR UNKNOWN INDICATION
  7. LEVOTHYROXINE SODIUM [Concomitant]
     Indication: HYPOTHYROIDISM
  8. METHYLPREDNISOLONE SODIUM SUCCINATE [Concomitant]

REACTIONS (6)
  - CIRCULATORY COLLAPSE [None]
  - DIARRHOEA [None]
  - INTESTINAL OBSTRUCTION [None]
  - VOMITING [None]
  - INTESTINAL INFARCTION [None]
  - CARDIAC ARREST [None]
